FAERS Safety Report 8756890 (Version 3)
Quarter: 2012Q4

REPORT INFORMATION
  Report Type: 
  Country: JP (occurrence: JP)
  Receive Date: 20120828
  Receipt Date: 20120920
  Transmission Date: 20130627
  Serious: Yes (Hospitalization, Other)
  Sender: FDA-Public Use
  Company Number: JP-NOVOPROD-356150

PATIENT
  Age: 30 Year
  Sex: Female
  Weight: 78 kg

DRUGS (3)
  1. LEVEMIR [Suspect]
     Indication: GESTATIONAL DIABETES
     Dosage: 10 U, qd
     Route: 058
     Dates: start: 20120707, end: 20120708
  2. LEVEMIR [Suspect]
     Dosage: 20 U, qd
     Route: 058
     Dates: start: 20120709, end: 20120710
  3. LEVEMIR [Suspect]
     Dosage: 30 U, qd
     Route: 058
     Dates: start: 20120711, end: 20120719

REACTIONS (7)
  - Abortion complete [Recovered/Resolved]
  - Glycosylated haemoglobin increased [Unknown]
  - Glucose tolerance impaired [Unknown]
  - Injection site erythema [Unknown]
  - Injection site swelling [Unknown]
  - Injection site pruritus [Unknown]
  - Exposure during pregnancy [Unknown]
